FAERS Safety Report 8827523 (Version 1)
Quarter: 2012Q4

REPORT INFORMATION
  Report Type: 
  Country: HU (occurrence: HU)
  Receive Date: 20121008
  Receipt Date: 20121008
  Transmission Date: 20130627
  Serious: Yes (Other)
  Sender: FDA-Public Use
  Company Number: HU-JNJFOC-20121000277

PATIENT
  Age: 58 Year
  Sex: Female
  Weight: 60 kg

DRUGS (5)
  1. REMICADE [Suspect]
     Indication: CROHN^S DISEASE
     Route: 042
     Dates: start: 20120925, end: 20120925
  2. BUDENOFALK [Concomitant]
     Indication: CROHN^S DISEASE
     Route: 065
     Dates: start: 1991
  3. LEGALON [Concomitant]
     Route: 065
     Dates: start: 2011
  4. GAVISCON (SODIUM ALGINATE, SODIUM BICARBONATE) [Concomitant]
     Indication: GASTROOESOPHAGEAL REFLUX DISEASE
     Route: 065
     Dates: start: 2000
  5. PANGROL 25000 [Concomitant]
     Indication: ENZYME SUPPLEMENTATION
     Route: 065
     Dates: start: 1990

REACTIONS (4)
  - Asphyxia [Recovered/Resolved]
  - Cough [Recovered/Resolved]
  - Dyspnoea [Recovered/Resolved]
  - Infusion related reaction [Recovered/Resolved]
